FAERS Safety Report 7446986-2 (Version None)
Quarter: 2011Q2

REPORT INFORMATION
  Report Type: 
  Country: None (occurrence: None)
  Receive Date: 20110429
  Receipt Date: 20110415
  Transmission Date: 20111010
  Serious: Yes (Life-Threatening)
  Sender: FDA-Public Use
  Company Number: IT-ELI_LILLY_AND_COMPANY-IT201104005633

PATIENT

DRUGS (6)
  1. ZYPREXA [Suspect]
     Dosage: 20 MG, UNK
     Route: 064
     Dates: end: 20110201
  2. DELORAZEPAM [Concomitant]
     Indication: PSYCHOTIC DISORDER
     Dosage: 2 MG, QD
     Route: 064
     Dates: end: 20110201
  3. DELORAZEPAM [Concomitant]
     Dosage: 2 MG, QD
     Route: 064
     Dates: end: 20110201
  4. ZYPREXA [Suspect]
     Indication: PSYCHOTIC DISORDER
     Dosage: 20 MG, UNK
     Route: 064
     Dates: end: 20110201
  5. ZOLOFT [Concomitant]
     Indication: PSYCHOTIC DISORDER
     Dosage: 250 MG, UNK
     Route: 064
     Dates: end: 20110201
  6. ZOLOFT [Concomitant]
     Dosage: 250 MG, UNK
     Route: 064
     Dates: end: 20110201

REACTIONS (2)
  - RESPIRATORY FAILURE [None]
  - DRUG EXPOSURE DURING PREGNANCY [None]
